FAERS Safety Report 10647066 (Version 2)
Quarter: 2014Q4

REPORT INFORMATION
  Report Type: Spontaneous
  Country: US (occurrence: US)
  Receive Date: 20141211
  Receipt Date: 20141211
  Transmission Date: 20150529
  Serious: No
  Sender: FDA-Public Use
  Company Number: US-INCYTE CORPORATION-2014IN002990

PATIENT
  Age: 67 Year
  Sex: Female

DRUGS (2)
  1. JAKAFI [Suspect]
     Active Substance: RUXOLITINIB
     Indication: MYELOFIBROSIS
     Dosage: 20 MG, BID
     Route: 048
     Dates: start: 20140804, end: 201410
  2. HYDREA [Concomitant]
     Active Substance: HYDROXYUREA

REACTIONS (7)
  - Abdominal distension [Unknown]
  - Chest pain [Unknown]
  - Contusion [Unknown]
  - Constipation [Unknown]
  - Headache [Unknown]
  - Feeling hot [Unknown]
  - Joint swelling [Unknown]

NARRATIVE: CASE EVENT DATE: 2014
